FAERS Safety Report 5914789-3 (Version None)
Quarter: 2008Q4

REPORT INFORMATION
  Report Type: 
  Country: None (occurrence: None)
  Receive Date: 20081010
  Receipt Date: 20080930
  Transmission Date: 20090506
  Serious: Yes (Death, Other)
  Sender: FDA-Public Use
  Company Number: US-ROCHE-577573

PATIENT
  Sex: Male

DRUGS (8)
  1. MYCOPHENOLATE MOFETIL [Suspect]
     Indication: MYASTHENIA GRAVIS
     Dosage: FORM: PILLS
     Route: 048
     Dates: start: 20040223
  2. MYCOPHENOLATE MOFETIL [Suspect]
     Dosage: DOSAGE INCREASED
     Route: 048
     Dates: start: 20050101
  3. MESTINON [Concomitant]
     Route: 048
     Dates: start: 20030101
  4. MESTINON [Concomitant]
     Route: 048
  5. PREDNISONE TAB [Concomitant]
     Dosage: FORM: PILLS
     Route: 048
     Dates: start: 20040101
  6. ALTACE [Concomitant]
  7. TOPROL-XL [Concomitant]
  8. COUMADIN [Concomitant]

REACTIONS (5)
  - AORTIC VALVE REPLACEMENT [None]
  - MULTI-ORGAN FAILURE [None]
  - MYOCARDIAL INFARCTION [None]
  - POST PROCEDURAL HAEMORRHAGE [None]
  - SHOCK HAEMORRHAGIC [None]
